FAERS Safety Report 9151321 (Version 1)
Quarter: 2013Q1

REPORT INFORMATION
  Report Type: Report from Study
  Country: CA (occurrence: CA)
  Receive Date: 20130308
  Receipt Date: 20130308
  Transmission Date: 20140127
  Serious: Yes (Other)
  Sender: FDA-Public Use
  Company Number: CA-ABBOTT-13P-028-1052764-00

PATIENT
  Age: 54 None
  Sex: Male

DRUGS (1)
  1. HUMIRA [Suspect]
     Indication: CROHN^S DISEASE
     Route: 058
     Dates: start: 20121112

REACTIONS (4)
  - Intestinal fistula [Unknown]
  - Crohn^s disease [Unknown]
  - Abscess intestinal [Unknown]
  - Large intestinal stenosis [Unknown]
